FAERS Safety Report 16502138 (Version 1)
Quarter: 2019Q3

REPORT INFORMATION
  Report Type: Spontaneous
  Country: US (occurrence: US)
  Receive Date: 20190630
  Receipt Date: 20190630
  Transmission Date: 20191004
  Serious: Yes (Other)
  Sender: FDA-Public Use
  Company Number: None

PATIENT
  Age: 36 Year
  Sex: Female
  Weight: 85.5 kg

DRUGS (3)
  1. MIRENA [Concomitant]
     Active Substance: LEVONORGESTREL
  2. OILY PROBIOICS [Concomitant]
  3. METRONIDAZOLE 0.75% VAGINAL GEL [Suspect]
     Active Substance: METRONIDAZOLE
     Indication: FUNGAL INFECTION
     Dosage: ?          QUANTITY:1 APPLICATOR;?
     Route: 067
     Dates: start: 20190625, end: 20190629

REACTIONS (4)
  - Vulvovaginal pain [None]
  - Vulvovaginal swelling [None]
  - Nail bed tenderness [None]
  - Vulvovaginal pruritus [None]

NARRATIVE: CASE EVENT DATE: 20190629
